FAERS Safety Report 9553916 (Version 1)
Quarter: 2013Q3

REPORT INFORMATION
  Report Type: Spontaneous
  Country: US (occurrence: None)
  Receive Date: 20130821
  Receipt Date: 20130821
  Transmission Date: 20140515
  Serious: Yes (Other)
  Sender: FDA-Public Use
  Company Number: 1000046702

PATIENT
  Age: 82 Year
  Sex: Male

DRUGS (3)
  1. TUDORZA PRESSAIR [Suspect]
     Dosage: 800 MCG (400 MCG, 2 IN 1 D) , RESPIRATORY (INHALATION)
     Route: 055
     Dates: start: 201306
  2. WARFARIN (WARFARIN) (WARFARIN) [Concomitant]
  3. SIMVASTATIN (SIMVASTATIN) (SIMVASTATIN) [Concomitant]

REACTIONS (2)
  - Dyspnoea [None]
  - Drug ineffective [None]
